FAERS Safety Report 4384650-7 (Version None)
Quarter: 2004Q2

REPORT INFORMATION
  Report Type: 
  Country: None (occurrence: None)
  Receive Date: 20040621
  Receipt Date: 20040608
  Transmission Date: 20050107
  Serious: Yes (Hospitalization)
  Sender: FDA-Public Use
  Company Number: 2004033230

PATIENT
  Age: 53 Year
  Sex: Male

DRUGS (3)
  1. LIPITOR [Suspect]
     Indication: DYSLIPIDAEMIA
     Dosage: 20 MG (20 MG, 1 IN 1 D), ORAL
     Route: 048
     Dates: start: 19980501
  2. BUFFERIN [Concomitant]
  3. AMLODIPINE BESYLATE [Concomitant]

REACTIONS (2)
  - CARDIAC DISORDER [None]
  - VENOUS OCCLUSION [None]
